FAERS Safety Report 5811544-X (Version None)
Quarter: 2008Q3

REPORT INFORMATION
  Report Type: 
  Country: None (occurrence: None)
  Receive Date: 20080716
  Receipt Date: 20080623
  Transmission Date: 20090109
  Serious: Yes (Death)
  Sender: FDA-Public Use
  Company Number: IT-MERCK-0806ITA00039

PATIENT

DRUGS (2)
  1. CASPOFUNGIN ACETATE [Suspect]
     Indication: BRONCHOPULMONARY ASPERGILLOSIS
     Route: 051
  2. VORICONAZOLE [Suspect]
     Indication: BRONCHOPULMONARY ASPERGILLOSIS
     Route: 065

REACTIONS (2)
  - DRUG INEFFECTIVE [None]
  - SYSTEMIC MYCOSIS [None]
